FAERS Safety Report 8442918-9 (Version None)
Quarter: 2012Q2

REPORT INFORMATION
  Report Type: 
  Country: None (occurrence: None)
  Receive Date: 20120323
  Receipt Date: 20110608
  Transmission Date: 20120825
  Serious: Yes (Other)
  Sender: FDA-Public Use
  Company Number: 163-21880-11061520

PATIENT
  Age: 66 Year
  Sex: Male

DRUGS (2)
  1. REVLIMID [Suspect]
     Indication: MULTIPLE MYELOMA
     Dosage: 15 MG, QD X 21 DAYS ON, THEN 7 DAYS OFF, PO; 15 MG, QD X 21 DAYS ON, THEN 7 DAYS OFF, PO
     Route: 048
     Dates: start: 20080131, end: 20080603
  2. REVLIMID [Suspect]
     Indication: MULTIPLE MYELOMA
     Dosage: 15 MG, QD X 21 DAYS ON, THEN 7 DAYS OFF, PO; 15 MG, QD X 21 DAYS ON, THEN 7 DAYS OFF, PO
     Route: 048
     Dates: start: 20101026

REACTIONS (1)
  - THROMBOSIS [None]
